FAERS Safety Report 6271303-3 (Version None)
Quarter: 2009Q3

REPORT INFORMATION
  Report Type: 
  Country: None (occurrence: None)
  Receive Date: 20090716
  Receipt Date: 20090716
  Transmission Date: 20100115
  Serious: Yes (Life-Threatening)
  Sender: FDA-Public Use
  Company Number: None

PATIENT
  Age: 54 Year
  Sex: Female
  Weight: 86.1834 kg

DRUGS (1)
  1. JANUVIA [Suspect]
     Indication: DIABETES MELLITUS
     Dosage: 1 TAB DAILY
     Dates: start: 20070501, end: 20080401

REACTIONS (5)
  - OROPHARYNGEAL PAIN [None]
  - PRURITUS [None]
  - RHINORRHOEA [None]
  - UPPER RESPIRATORY TRACT INFECTION [None]
  - URTICARIA [None]
